FAERS Safety Report 6873343-X (Version None)
Quarter: 2010Q3

REPORT INFORMATION
  Report Type: 
  Country: None (occurrence: None)
  Receive Date: 20100723
  Receipt Date: 20090128
  Transmission Date: 20110219
  Serious: No
  Sender: FDA-Public Use
  Company Number: US-PFIZER INC-2008157424

PATIENT
  Sex: Female
  Weight: 53.5 kg

DRUGS (2)
  1. CHANTIX [Suspect]
     Indication: SMOKING CESSATION THERAPY
     Dosage: 0.5 MG, 1X/DAY
     Route: 048
     Dates: start: 20081205, end: 20081205
  2. CHANTIX [Suspect]
     Indication: NICOTINE DEPENDENCE

REACTIONS (3)
  - BURNING SENSATION [None]
  - HEADACHE [None]
  - MIGRAINE [None]
